FAERS Safety Report 6882197-7 (Version None)
Quarter: 2010Q3

REPORT INFORMATION
  Report Type: 
  Country: None (occurrence: None)
  Receive Date: 20100702
  Receipt Date: 20100113
  Transmission Date: 20110219
  Serious: Yes (Other)
  Sender: FDA-Public Use
  Company Number: 2009304944

PATIENT
  Sex: Female

DRUGS (16)
  1. SERTRALINE HYDROCHLORIDE [Suspect]
  2. GABAPENTIN [Concomitant]
  3. METHOTREXATE [Concomitant]
  4. VALSARTAN [Concomitant]
  5. PREDNISONE [Concomitant]
  6. HUMIRA [Concomitant]
  7. FOLIC ACID [Concomitant]
  8. INSULIN (INSULIN) [Concomitant]
  9. LORTAB [Concomitant]
  10. NEURONTIN [Concomitant]
  11. OXYCODONE HCL [Concomitant]
  12. FENTANYL-100 [Concomitant]
  13. SOMA (CAARISOPRODOL) [Concomitant]
  14. DILAUDID [Concomitant]
  15. ACETAMINOPHEN [Concomitant]
  16. HYDROMORPHONE HCL [Concomitant]

REACTIONS (1)
  - DYSKINESIA [None]
